FAERS Safety Report 10521012 (Version 2)
Quarter: 2014Q4

REPORT INFORMATION
  Report Type: Spontaneous
  Country: PL (occurrence: PL)
  Receive Date: 20141016
  Receipt Date: 20141031
  Transmission Date: 20150528
  Serious: Yes (Other)
  Sender: FDA-Public Use
  Company Number: PL-ROCHE-1472015

PATIENT
  Age: 43 Year
  Sex: Male

DRUGS (8)
  1. FLUDARABINE [Concomitant]
     Active Substance: FLUDARABINE PHOSPHATE
     Route: 065
     Dates: start: 201302, end: 201308
  2. MABTHERA [Suspect]
     Active Substance: RITUXIMAB
     Dosage: 4 CYCLES
     Route: 065
     Dates: start: 201302, end: 201308
  3. CYCLOPHOSPHAMIDE. [Concomitant]
     Active Substance: CYCLOPHOSPHAMIDE
     Route: 065
     Dates: start: 201302, end: 201308
  4. FLUDARABINE [Concomitant]
     Active Substance: FLUDARABINE PHOSPHATE
     Route: 065
     Dates: start: 200908, end: 201102
  5. MABTHERA [Suspect]
     Active Substance: RITUXIMAB
     Dosage: 4 CYCLES
     Route: 065
     Dates: start: 201406, end: 201407
  6. BENDAMUSTINE [Concomitant]
     Active Substance: BENDAMUSTINE
     Dosage: 4 CYCLES
     Route: 065
     Dates: start: 201309, end: 201401
  7. MABTHERA [Suspect]
     Active Substance: RITUXIMAB
     Indication: CHRONIC LYMPHOCYTIC LEUKAEMIA
     Dosage: 4 CYCLES
     Route: 065
     Dates: start: 200908, end: 201102
  8. CYCLOPHOSPHAMIDE. [Concomitant]
     Active Substance: CYCLOPHOSPHAMIDE
     Route: 065
     Dates: start: 200908, end: 201102

REACTIONS (8)
  - Anaemia [Unknown]
  - Leukocytosis [Unknown]
  - Chronic sinusitis [Unknown]
  - Cytomegalovirus infection [Unknown]
  - Acute graft versus host disease [Unknown]
  - Lymphadenopathy [Unknown]
  - Adenovirus infection [Unknown]
  - Vena cava thrombosis [Unknown]
